FAERS Safety Report 17263351 (Version 1)
Quarter: 2020Q1

REPORT INFORMATION
  Report Type: Spontaneous
  Country: US (occurrence: US)
  Receive Date: 20200112
  Receipt Date: 20200112
  Transmission Date: 20200409
  Serious: Yes (Life-Threatening, Hospitalization)
  Sender: FDA-Public Use
  Company Number: None

PATIENT
  Age: 83 Year
  Sex: Male
  Weight: 67.5 kg

DRUGS (16)
  1. TRAZODONE [Concomitant]
     Active Substance: TRAZODONE HYDROCHLORIDE
  2. TIMOPTIC [Concomitant]
     Active Substance: TIMOLOL MALEATE
  3. HUMIRA [Suspect]
     Active Substance: ADALIMUMAB
     Indication: PSORIATIC ARTHROPATHY
     Dosage: ?          QUANTITY:2 INJECTION(S);OTHER FREQUENCY:EVERY TWO WEEKS;?
     Route: 058
     Dates: start: 20191106, end: 20191121
  4. VITAMIN D [Concomitant]
     Active Substance: VITAMIN D NOS
  5. PENICILLAMINE [Concomitant]
     Active Substance: PENICILLAMINE
  6. LUMIGAN [Concomitant]
     Active Substance: BIMATOPROST
  7. WALKER/CANE [Concomitant]
  8. IBANDRONATE [Concomitant]
     Active Substance: IBANDRONATE SODIUM
  9. METHOTREXATE. [Concomitant]
     Active Substance: METHOTREXATE
  10. LUTEIN/ZEAXANTHIN [Concomitant]
  11. MAGNESIUM OXIDE. [Concomitant]
     Active Substance: MAGNESIUM OXIDE
  12. FERROUS SULFATE. [Concomitant]
     Active Substance: FERROUS SULFATE
  13. SIMBRINZA [Concomitant]
     Active Substance: BRIMONIDINE TARTRATE\BRINZOLAMIDE
  14. OMEPRAZOLE. [Concomitant]
     Active Substance: OMEPRAZOLE
  15. VITAMIN B6 [Concomitant]
     Active Substance: PYRIDOXINE HYDROCHLORIDE
  16. HUMIRA [Suspect]
     Active Substance: ADALIMUMAB
     Indication: PSORIASIS
     Dosage: ?          QUANTITY:2 INJECTION(S);OTHER FREQUENCY:EVERY TWO WEEKS;?
     Route: 058
     Dates: start: 20191106, end: 20191121

REACTIONS (7)
  - Loss of consciousness [None]
  - Epistaxis [None]
  - Pain in extremity [None]
  - Aspiration [None]
  - Chest pain [None]
  - Haemoptysis [None]
  - Thrombosis [None]

NARRATIVE: CASE EVENT DATE: 20191129
